FAERS Safety Report 9317470 (Version 1)
Quarter: 2013Q2

REPORT INFORMATION
  Report Type: Spontaneous
  Country: US (occurrence: US)
  Receive Date: 20130530
  Receipt Date: 20130530
  Transmission Date: 20140414
  Serious: Yes (Hospitalization)
  Sender: FDA-Public Use
  Company Number: US-NOVEN-12US005104

PATIENT
  Age: 8 Year
  Sex: Female

DRUGS (2)
  1. DAYTRANA [Suspect]
     Indication: ATTENTION DEFICIT/HYPERACTIVITY DISORDER
     Dosage: 20 MG, QD
     Route: 062
     Dates: start: 20120812, end: 20120812
  2. DAYTRANA [Suspect]
     Dosage: 15 MG, UNK

REACTIONS (10)
  - Heart rate increased [Recovering/Resolving]
  - Tic [Recovered/Resolved]
  - Eye pruritus [Unknown]
  - Tremor [Recovered/Resolved]
  - Abnormal behaviour [Recovering/Resolving]
  - Dyskinesia [Recovering/Resolving]
  - Malaise [Recovering/Resolving]
  - Abdominal pain upper [Unknown]
  - Decreased appetite [Recovering/Resolving]
  - Overdose [Unknown]
